FAERS Safety Report 13463460 (Version 9)
Quarter: 2021Q2

REPORT INFORMATION
  Report Type: Spontaneous
  Country: US (occurrence: US)
  Receive Date: 20170420
  Receipt Date: 20210412
  Transmission Date: 20210716
  Serious: Yes (Other)
  Sender: FDA-Public Use
  Company Number: US-PFIZER INC-2017169452

PATIENT
  Age: 66 Year
  Sex: Female
  Weight: 61 kg

DRUGS (5)
  1. GENOTROPIN MQ [Suspect]
     Active Substance: SOMATROPIN
     Indication: HYPOPITUITARISM
     Dosage: 0.5 MG, DAILY
  2. GENOTROPIN MQ [Suspect]
     Active Substance: SOMATROPIN
     Indication: GROWTH HORMONE DEFICIENCY
     Dosage: 0.8 MG, DAILY (7 DAYS PER WEEK)
     Dates: start: 2004, end: 20170727
  3. CORTEF [HYDROCORTISONE ACETATE] [Concomitant]
     Active Substance: HYDROCORTISONE ACETATE
     Indication: ADDISON^S DISEASE
     Dosage: 20 MG, 1X/DAY (TOOK 15 MG AT 8 AM AND 5 MG AT 3 PM WITH WATER)
     Dates: start: 200601
  4. GENOTROPIN MQ [Suspect]
     Active Substance: SOMATROPIN
     Dosage: 0.8 MG, 1X/DAY (0.8 MG ONCE NIGHTLY IN HER TUMMY OR THIGH)
  5. CORTEF [HYDROCORTISONE ACETATE] [Concomitant]
     Active Substance: HYDROCORTISONE ACETATE
     Dosage: 20 MG, 1X/DAY (TOOK 15 MG AT 8 AM AND 5 MG AT 3 PM WITH WATER)

REACTIONS (9)
  - Weight increased [Unknown]
  - Spinal compression fracture [Unknown]
  - Body height decreased [Unknown]
  - Pituitary-dependent Cushing^s syndrome [Unknown]
  - Insulin-like growth factor decreased [Unknown]
  - Pneumonia [Unknown]
  - Influenza [Unknown]
  - Bronchitis [Unknown]
  - Fatigue [Unknown]

NARRATIVE: CASE EVENT DATE: 2017
